FAERS Safety Report 7588557-3 (Version None)
Quarter: 2011Q3

REPORT INFORMATION
  Report Type: 
  Country: None (occurrence: None)
  Receive Date: 20110705
  Receipt Date: 20110624
  Transmission Date: 20111222
  Serious: Yes (Other)
  Sender: FDA-Public Use
  Company Number: US-GENZYME-THYM-1002558

PATIENT
  Age: 29 Year
  Sex: Female

DRUGS (4)
  1. MELPHALAN HYDROCHLORIDE [Concomitant]
     Indication: BONE MARROW CONDITIONING REGIMEN
     Dosage: UNK
  2. TACROLIMUS [Concomitant]
     Indication: PROPHYLAXIS AGAINST GRAFT VERSUS HOST DISEASE
  3. METHOTREXATE [Concomitant]
     Indication: PROPHYLAXIS AGAINST GRAFT VERSUS HOST DISEASE
  4. THYMOGLOBULIN [Suspect]
     Indication: PROPHYLAXIS AGAINST GRAFT VERSUS HOST DISEASE

REACTIONS (11)
  - CYTOMEGALOVIRUS VIRAEMIA [None]
  - CD8 LYMPHOCYTES DECREASED [None]
  - BACTERAEMIA [None]
  - CYTOMEGALOVIRUS INFECTION [None]
  - CHRONIC GRAFT VERSUS HOST DISEASE [None]
  - DRUG RESISTANCE [None]
  - ACUTE GRAFT VERSUS HOST DISEASE IN INTESTINE [None]
  - PNEUMONITIS [None]
  - CD4 LYMPHOCYTES DECREASED [None]
  - ACUTE GRAFT VERSUS HOST DISEASE IN SKIN [None]
  - ENCEPHALITIS CYTOMEGALOVIRUS [None]
